FAERS Safety Report 4502956-5 (Version None)
Quarter: 2004Q4

REPORT INFORMATION
  Report Type: 
  Country: None (occurrence: None)
  Receive Date: 20041116
  Receipt Date: 20041116
  Transmission Date: 20050328
  Serious: No
  Sender: FDA-Public Use
  Company Number: None

PATIENT
  Age: 56 Year
  Sex: Female
  Weight: 66.13 kg

DRUGS (8)
  1. NAVELBINE [Suspect]
     Indication: BREAST CANCER
     Dosage: 53  Q 2 WEEKS INTRAVENOUS
     Route: 042
     Dates: start: 20041005, end: 20041102
  2. TAXOTERE [Suspect]
     Indication: BREAST CANCER
     Dosage: 107   Q 2 WEEKS INTRAVENOUS
     Route: 042
     Dates: start: 20041005, end: 20041102
  3. DEXAMETHASONE [Concomitant]
  4. ANZEMET [Concomitant]
  5. MULTI-VITAMIN [Concomitant]
  6. METAMUCIL-2 [Concomitant]
  7. ASPIRIN [Concomitant]
  8. PEGFILGRASTIM [Concomitant]

REACTIONS (2)
  - LEUKOPENIA [None]
  - NEUTROPHIL COUNT DECREASED [None]
